FAERS Safety Report 18467971 (Version 2)
Quarter: 2021Q1

REPORT INFORMATION
  Report Type: Spontaneous
  Country: US (occurrence: US)
  Receive Date: 20201105
  Receipt Date: 20210112
  Transmission Date: 20210419
  Serious: No
  Sender: FDA-Public Use
  Company Number: US-JNJFOC-20201045519

PATIENT
  Age: 41 Year
  Sex: Male
  Weight: 72.64 kg

DRUGS (1)
  1. INVEGA [Suspect]
     Active Substance: PALIPERIDONE
     Indication: SCHIZOPHRENIA
     Route: 048
     Dates: start: 2019, end: 202001

REACTIONS (1)
  - Aphasia [Not Recovered/Not Resolved]

NARRATIVE: CASE EVENT DATE: 201901
